FAERS Safety Report 23361214 (Version 1)
Quarter: 2024Q1

REPORT INFORMATION
  Report Type: Spontaneous
  Country: FR (occurrence: FR)
  Receive Date: 20240103
  Receipt Date: 20240103
  Transmission Date: 20240410
  Serious: Yes (Hospitalization)
  Sender: FDA-Public Use
  Company Number: None

PATIENT
  Age: 54 Year
  Sex: Female

DRUGS (2)
  1. EBASTINE [Suspect]
     Active Substance: EBASTINE
     Indication: Rash
     Dosage: UNK
     Route: 048
     Dates: start: 20190506
  2. KETOPROFEN [Suspect]
     Active Substance: KETOPROFEN
     Indication: Fracture
     Dosage: UNK
     Route: 042
     Dates: start: 20190405

REACTIONS (1)
  - Drug reaction with eosinophilia and systemic symptoms [Recovered/Resolved]

NARRATIVE: CASE EVENT DATE: 20190503
